FAERS Safety Report 7279133 (Version 9)
Quarter: 2013Q4

REPORT INFORMATION
  Report Type: Spontaneous
  Country: US (occurrence: US)
  Receive Date: 20100216
  Receipt Date: 20131203
  Transmission Date: 20140711
  Serious: Yes (Hospitalization, Other)
  Sender: FDA-Public Use
  Company Number: US-JNJFOC-20100203926

PATIENT
  Age: 60 Year
  Sex: Male

DRUGS (2)
  1. LEVAQUIN [Suspect]
     Indication: RESPIRATORY TRACT INFECTION
     Route: 048
     Dates: start: 20071007, end: 20090620
  2. STEROIDS NOS [Suspect]
     Indication: PRODUCT USED FOR UNKNOWN INDICATION
     Route: 065

REACTIONS (5)
  - Muscle rupture [Unknown]
  - Rotator cuff syndrome [Unknown]
  - Tendon rupture [Recovering/Resolving]
  - Muscle strain [Unknown]
  - Tendonitis [Recovering/Resolving]
